FAERS Safety Report 6517100-2 (Version None)
Quarter: 2009Q4

REPORT INFORMATION
  Report Type: 
  Country: None (occurrence: None)
  Receive Date: 20091223
  Receipt Date: 20091222
  Transmission Date: 20100525
  Serious: Yes (Hospitalization)
  Sender: FDA-Public Use
  Company Number: B0611377A

PATIENT
  Sex: Female
  Weight: 35 kg

DRUGS (15)
  1. RELENZA [Suspect]
     Indication: H1N1 INFLUENZA
     Dosage: 560MG PER DAY
     Route: 042
     Dates: start: 20091126, end: 20091126
  2. OXCARBAZEPINE [Concomitant]
  3. TAZOCIN [Concomitant]
  4. GENTAMICIN [Concomitant]
  5. OSELTAMIVIR PHOSPHATE [Concomitant]
  6. COLOMYCIN [Concomitant]
  7. VALPROATE SODIUM [Concomitant]
  8. CARBOCISTEINE [Concomitant]
  9. CLOBAZAM [Concomitant]
  10. DOMPERIDONE [Concomitant]
  11. CALCIUM-SANDOZ [Concomitant]
  12. MELATONIN [Concomitant]
  13. ALBUTEROL [Concomitant]
  14. PARACETAMOL [Concomitant]
  15. CEFTAZIDIME PENTAHYDRATE [Concomitant]

REACTIONS (2)
  - CONVULSION [None]
  - VOMITING [None]
